FAERS Safety Report 4796190-1 (Version None)
Quarter: 2005Q4

REPORT INFORMATION
  Report Type: 
  Country: None (occurrence: None)
  Receive Date: 20051006
  Receipt Date: 20051006
  Transmission Date: 20060501
  Serious: Yes (Hospitalization)
  Sender: FDA-Public Use
  Company Number: None

PATIENT
  Age: 66 Year
  Sex: Female
  Weight: 94 kg

DRUGS (1)
  1. TAMOXIFEN 20MG [Suspect]
     Indication: BREAST CANCER
     Dosage: 20MG QDAY P.O.
     Route: 048
     Dates: start: 20020615

REACTIONS (4)
  - ASCITES [None]
  - COMPUTERISED TOMOGRAM ABNORMAL [None]
  - PELVIC MASS [None]
  - SALPINGO-OOPHORECTOMY UNILATERAL [None]
